FAERS Safety Report 4928662-0 (Version None)
Quarter: 2006Q1

REPORT INFORMATION
  Report Type: 
  Country: None (occurrence: None)
  Receive Date: 20060227
  Receipt Date: 20060227
  Transmission Date: 20060701
  Serious: No
  Sender: FDA-Public Use
  Company Number: None

PATIENT

DRUGS (2)
  1. SODIUM CHLORIDE [Suspect]
     Dosage: 1000 ML
  2. DEXTROSE 5% [Suspect]

REACTIONS (5)
  - BLISTER [None]
  - CAUSTIC INJURY [None]
  - PAROSMIA [None]
  - PHARMACEUTICAL PRODUCT COMPLAINT [None]
  - PRURITUS [None]
